FAERS Safety Report 8954107 (Version 1)
Quarter: 2012Q4

REPORT INFORMATION
  Report Type: 
  Country: JP (occurrence: JP)
  Receive Date: 20121207
  Receipt Date: 20121207
  Transmission Date: 20130627
  Serious: Yes (Hospitalization)
  Sender: FDA-Public Use
  Company Number: JP-OTSUKA-JP-2012-16762

PATIENT
  Age: 82 Year
  Sex: Male

DRUGS (2)
  1. PLETAAL [Suspect]
     Indication: ANGINA PECTORIS
     Dosage: UNK
     Route: 048
  2. BAYASPIRIN [Suspect]
     Indication: ANGINA PECTORIS
     Dosage: UNK
     Route: 048

REACTIONS (1)
  - Gastric ulcer haemorrhage [Recovered/Resolved]
